FAERS Safety Report 5932791-2 (Version None)
Quarter: 2008Q4

REPORT INFORMATION
  Report Type: 
  Country: None (occurrence: None)
  Receive Date: 20081028
  Receipt Date: 20081024
  Transmission Date: 20090506
  Serious: Yes (Other)
  Sender: FDA-Public Use
  Company Number: B0541413A

PATIENT
  Age: 77 Year
  Sex: Female

DRUGS (4)
  1. PAXIL [Suspect]
     Indication: DEPRESSION
     Dosage: 20MG TWICE PER DAY
     Route: 048
     Dates: end: 20081003
  2. GRAMALIL [Concomitant]
     Dosage: 25MG TWICE PER DAY
     Route: 048
  3. AMOBAN [Concomitant]
     Dosage: 7.5MG PER DAY
     Route: 048
  4. DOGMATYL [Concomitant]
     Dosage: 100MG PER DAY
     Route: 048
     Dates: end: 20081003

REACTIONS (4)
  - DYSKINESIA [None]
  - EXTRAPYRAMIDAL DISORDER [None]
  - SPEECH DISORDER [None]
  - TREMOR [None]
